FAERS Safety Report 5265479-4 (Version None)
Quarter: 2007Q1

REPORT INFORMATION
  Report Type: 
  Country: None (occurrence: None)
  Receive Date: 20061213
  Receipt Date: 20040913
  Transmission Date: 20070707
  Serious: Yes (Other)
  Sender: FDA-Public Use
  Company Number: 2004UW19161

PATIENT
  Age: 65 Year
  Sex: Male
  Weight: 91.6266 kg

DRUGS (3)
  1. IRESSA [Suspect]
     Indication: NON-SMALL CELL LUNG CANCER
  2. AVANDIA [Concomitant]
  3. COREG [Concomitant]

REACTIONS (3)
  - DERMATITIS EXFOLIATIVE [None]
  - DRY SKIN [None]
  - TUMOUR MARKER INCREASED [None]
